FAERS Safety Report 5259841-3 (Version None)
Quarter: 2007Q1

REPORT INFORMATION
  Report Type: 
  Country: None (occurrence: None)
  Receive Date: 20070309
  Receipt Date: 20070307
  Transmission Date: 20070707
  Serious: Yes (Death, Hospitalization)
  Sender: FDA-Public Use
  Company Number: US-BRISTOL-MYERS SQUIBB COMPANY-13704820

PATIENT
  Sex: Female

DRUGS (4)
  1. COUMADIN [Suspect]
  2. ASPIRIN [Concomitant]
  3. PLAVIX [Concomitant]
  4. LEVOFLOXACIN [Concomitant]

REACTIONS (4)
  - CHEST PAIN [None]
  - DEATH [None]
  - HAEMORRHAGE [None]
  - MYOCARDIAL INFARCTION [None]
